FAERS Safety Report 7520009-9 (Version None)
Quarter: 2011Q2

REPORT INFORMATION
  Report Type: 
  Country: None (occurrence: None)
  Receive Date: 20110602
  Receipt Date: 20110520
  Transmission Date: 20111010
  Serious: Yes (Hospitalization)
  Sender: FDA-Public Use
  Company Number: PHHY2011CA22538

PATIENT
  Sex: Female

DRUGS (3)
  1. SANDOSTATIN LAR [Suspect]
     Indication: CARCINOID TUMOUR
     Dosage: 20 MG, EVERY 4 WEEKS
     Route: 030
     Dates: start: 20101207
  2. SANDOSTATIN LAR [Suspect]
     Dosage: 10 MG, EVERY 4 WEEKS
     Route: 030
  3. SANDOSTATIN LAR [Suspect]
     Route: 030
     Dates: start: 20110404

REACTIONS (4)
  - CHEST PAIN [None]
  - CARDIAC FIBRILLATION [None]
  - FLATULENCE [None]
  - ABDOMINAL DISCOMFORT [None]
